FAERS Safety Report 13747606 (Version 2)
Quarter: 2018Q1

REPORT INFORMATION
  Report Type: Report from Study
  Country: US (occurrence: US)
  Receive Date: 20170712
  Receipt Date: 20180102
  Transmission Date: 20180508
  Serious: Yes (Death, Hospitalization)
  Sender: FDA-Public Use
  Company Number: US-VIFOR (INTERNATIONAL) INC.-VIT-2017-07463

PATIENT
  Age: 69 Year
  Sex: Male
  Weight: 90.8 kg

DRUGS (21)
  1. ERGOCALCIFEROL. [Concomitant]
     Active Substance: ERGOCALCIFEROL
  2. COQ10 [Concomitant]
     Active Substance: UBIDECARENONE
  3. VELTASSA [Suspect]
     Active Substance: PATIROMER
     Indication: HYPERKALAEMIA
     Route: 048
     Dates: start: 20170221
  4. LIVALO [Concomitant]
     Active Substance: PITAVASTATIN CALCIUM
  5. FENOFIBRATE. [Concomitant]
     Active Substance: FENOFIBRATE
  6. ACETYLSALICYLIC ACID [Concomitant]
     Active Substance: ASPIRIN
  7. GLYCERYL TRINITRATE [Concomitant]
     Active Substance: NITROGLYCERIN
  8. LEVOTHYROXINE SODIUM. [Concomitant]
     Active Substance: LEVOTHYROXINE SODIUM
  9. LORATADINE. [Concomitant]
     Active Substance: LORATADINE
  10. IRON [Concomitant]
     Active Substance: IRON
  11. ZANTAC [Concomitant]
     Active Substance: RANITIDINE HYDROCHLORIDE
  12. RANEXA [Concomitant]
     Active Substance: RANOLAZINE
  13. ULORIC [Concomitant]
     Active Substance: FEBUXOSTAT
  14. BYSTOLIC [Concomitant]
     Active Substance: NEBIVOLOL HYDROCHLORIDE
  15. PIOGLITAZONE. [Concomitant]
     Active Substance: PIOGLITAZONE
  16. VITAMINS NOS [Concomitant]
     Active Substance: VITAMINS
  17. LYRICA [Concomitant]
     Active Substance: PREGABALIN
  18. ELIQUIS [Concomitant]
     Active Substance: APIXABAN
  19. LANTUS [Concomitant]
     Active Substance: INSULIN GLARGINE
  20. ISOSORBIDE MONONITRATE. [Concomitant]
     Active Substance: ISOSORBIDE MONONITRATE
  21. ZETIA [Concomitant]
     Active Substance: EZETIMIBE

REACTIONS (3)
  - Cardiac arrest [Fatal]
  - Thrombosis [Fatal]
  - Hospitalisation [Not Recovered/Not Resolved]

NARRATIVE: CASE EVENT DATE: 20170622
